FAERS Safety Report 21442320 (Version 1)
Quarter: 2022Q4

REPORT INFORMATION
  Report Type: Spontaneous
  Country: FR (occurrence: FR)
  Receive Date: 20221011
  Receipt Date: 20221011
  Transmission Date: 20230113
  Serious: Yes (Death, Other)
  Sender: FDA-Public Use
  Company Number: FR-GILEAD-2022-0600966

PATIENT
  Sex: Male

DRUGS (1)
  1. AXICABTAGENE CILOLEUCEL [Suspect]
     Active Substance: AXICABTAGENE CILOLEUCEL
     Indication: Product used for unknown indication
     Dosage: SUSPENSION
     Route: 065

REACTIONS (3)
  - Septic shock [Fatal]
  - Immune effector cell-associated neurotoxicity syndrome [Not Recovered/Not Resolved]
  - Cytokine release syndrome [Not Recovered/Not Resolved]
